FAERS Safety Report 10642551 (Version 1)
Quarter: 2014Q4

REPORT INFORMATION
  Report Type: Spontaneous
  Country: FR (occurrence: FR)
  Receive Date: 20141210
  Receipt Date: 20141210
  Transmission Date: 20150529
  Serious: Yes (Hospitalization)
  Sender: FDA-Public Use
  Company Number: FR-ROCHE-1505259

PATIENT
  Age: 80 Year
  Sex: Male

DRUGS (3)
  1. ROCEPHINE [Suspect]
     Active Substance: CEFTRIAXONE SODIUM
     Indication: BACTERIAL PROSTATITIS
     Route: 065
     Dates: start: 20141025, end: 20141027
  2. CALCIPARINE [Concomitant]
     Active Substance: HEPARIN CALCIUM
  3. AZACTAM [Concomitant]
     Active Substance: AZTREONAM

REACTIONS (2)
  - Dermatitis exfoliative [Recovering/Resolving]
  - Acute generalised exanthematous pustulosis [Recovering/Resolving]

NARRATIVE: CASE EVENT DATE: 20141027
